FAERS Safety Report 6190174-7 (Version None)
Quarter: 2009Q2

REPORT INFORMATION
  Report Type: 
  Country: None (occurrence: None)
  Receive Date: 20090427
  Receipt Date: 20080801
  Transmission Date: 20091009
  Serious: Yes (Hospitalization, Other)
  Sender: FDA-Public Use
  Company Number: WAES 0808USA00234

PATIENT
  Age: 8 Year
  Sex: Male

DRUGS (4)
  1. SINGULAIR [Suspect]
     Dosage: 5 MG/DAILY/PO
     Route: 048
     Dates: start: 20060401, end: 20080601
  2. ADDERALL TABLETS [Concomitant]
  3. ZYRTEC [Concomitant]
  4. CLONIDINE [Concomitant]

REACTIONS (2)
  - AGGRESSION [None]
  - PSYCHOMOTOR HYPERACTIVITY [None]
